FAERS Safety Report 9089906 (Version 1)
Quarter: 2013Q1

REPORT INFORMATION
  Report Type: Spontaneous
  Country: US (occurrence: US)
  Receive Date: 20130201
  Receipt Date: 20130201
  Transmission Date: 20140127
  Serious: No
  Sender: FDA-Public Use
  Company Number: US-ASTRAZENECA-2012SE87835

PATIENT
  Age: 39 Year
  Sex: Female

DRUGS (4)
  1. NEXIUM [Suspect]
     Indication: GASTRIC MUCOSAL LESION
     Route: 048
  2. NEXIUM [Suspect]
     Indication: DYSPEPSIA
     Route: 048
  3. NEXIUM [Suspect]
     Indication: GASTRIC MUCOSAL LESION
     Route: 048
  4. NEXIUM [Suspect]
     Indication: DYSPEPSIA
     Route: 048

REACTIONS (9)
  - Tooth abscess [Unknown]
  - Anxiety [Unknown]
  - Weight decreased [Unknown]
  - Paranoia [Unknown]
  - Disease recurrence [Unknown]
  - Oesophageal disorder [Unknown]
  - Dry mouth [Unknown]
  - Malaise [Unknown]
  - Drug dose omission [Unknown]
